FAERS Safety Report 21492565 (Version 1)
Quarter: 2022Q4

REPORT INFORMATION
  Report Type: Report from Study
  Country: US (occurrence: US)
  Receive Date: 20221021
  Receipt Date: 20221021
  Transmission Date: 20230113
  Serious: No
  Sender: FDA-Public Use
  Company Number: US-ABBVIE-4162019

PATIENT
  Sex: Female

DRUGS (8)
  1. SKYRIZI [Suspect]
     Active Substance: RISANKIZUMAB-RZAA
     Indication: Psoriasis
     Route: 058
     Dates: start: 202202
  2. LOESTR IN 21 1.5-30 TABLET [Concomitant]
     Indication: Product used for unknown indication
  3. XANAX [Concomitant]
     Active Substance: ALPRAZOLAM
     Indication: Product used for unknown indication
  4. PEGASYS [Concomitant]
     Active Substance: PEGINTERFERON ALFA-2A
     Indication: Product used for unknown indication
  5. MULTIVITAMIN TABLET [Concomitant]
     Indication: Product used for unknown indication
  6. RIBAVIRIN 200 MG CAPSULE [Concomitant]
     Indication: Product used for unknown indication
  7. MODAFINIL 100 MG TABLET [Concomitant]
     Indication: Product used for unknown indication
  8. PROCRIT 10, 000 UNITS/ML VIAL [Concomitant]
     Indication: Product used for unknown indication

REACTIONS (1)
  - Psoriasis [Unknown]
